FAERS Safety Report 7227581-7 (Version None)
Quarter: 2011Q1

REPORT INFORMATION
  Report Type: 
  Country: None (occurrence: None)
  Receive Date: 20110114
  Receipt Date: 20110105
  Transmission Date: 20110831
  Serious: Yes (Other)
  Sender: FDA-Public Use
  Company Number: JP-ROCHE-752953

PATIENT
  Age: 65 Year
  Sex: Male

DRUGS (1)
  1. AVASTIN [Suspect]
     Indication: RETINAL ARTERY OCCLUSION
     Dosage: DOSAGE IS UNCERTAIN
     Route: 031

REACTIONS (1)
  - RETINAL ARTERY OCCLUSION [None]
